FAERS Safety Report 5161477-X (Version None)
Quarter: 2006Q4

REPORT INFORMATION
  Report Type: 
  Country: None (occurrence: None)
  Receive Date: 20061130
  Receipt Date: 20060818
  Transmission Date: 20070319
  Serious: Yes (Other)
  Sender: FDA-Public Use
  Company Number: US-GLAXOSMITHKLINE-A0617260A

PATIENT
  Age: 83 Year
  Sex: Female

DRUGS (7)
  1. WELLBUTRIN XL [Suspect]
     Indication: DEPRESSION
     Dosage: 150MG PER DAY
     Route: 048
  2. XANAX [Concomitant]
  3. PAXIL [Concomitant]
  4. PRECOSE [Concomitant]
  5. TOPROL-XL [Concomitant]
  6. GLYBURIDE [Concomitant]
  7. ALLEGRA [Concomitant]

REACTIONS (4)
  - DYSPNOEA [None]
  - HALLUCINATION [None]
  - NIGHTMARE [None]
  - PARANOIA [None]
